FAERS Safety Report 15841012 (Version 4)
Quarter: 2025Q4

REPORT INFORMATION
  Report Type: Report from Study
  Country: JP (occurrence: JP)
  Receive Date: 20190118
  Receipt Date: 20251210
  Transmission Date: 20260117
  Serious: Yes (Other)
  Sender: BIOGEN
  Company Number: JP-BIOGEN-2019BI00684076

PATIENT
  Age: 59 Year
  Sex: Female
  Weight: 53 kg

DRUGS (23)
  1. SPINRAZA [Suspect]
     Active Substance: NUSINERSEN
     Indication: Spinal muscular atrophy
     Dates: start: 20181010, end: 20181010
  2. SPINRAZA [Suspect]
     Active Substance: NUSINERSEN
  3. SPINRAZA [Suspect]
     Active Substance: NUSINERSEN
     Dates: start: 20181107, end: 20181107
  4. SPINRAZA [Suspect]
     Active Substance: NUSINERSEN
  5. SPINRAZA [Suspect]
     Active Substance: NUSINERSEN
     Dates: start: 20210113
  6. SPINRAZA [Suspect]
     Active Substance: NUSINERSEN
     Dates: start: 20190109, end: 20190109
  7. VONOPRAZAN FUMARATE [Concomitant]
     Active Substance: VONOPRAZAN FUMARATE
     Indication: Diabetes mellitus
  8. VONOPRAZAN FUMARATE [Concomitant]
     Active Substance: VONOPRAZAN FUMARATE
     Indication: Dyslipidaemia
  9. TRAMCET [Concomitant]
     Active Substance: ACETAMINOPHEN\TRAMADOL
     Indication: Diabetes mellitus
  10. TRAMCET [Concomitant]
     Active Substance: ACETAMINOPHEN\TRAMADOL
     Indication: Dyslipidaemia
  11. LIDOCAINE [Concomitant]
     Active Substance: LIDOCAINE
     Indication: Anaesthesia procedure
     Dosage: FREQUENCY TEXT:AT EACH SPINRAZA ADMINISTRATION
  12. XYLOCAINE [Concomitant]
     Active Substance: LIDOCAINE HYDROCHLORIDE
     Indication: Anaesthesia procedure
     Dosage: FREQUENCY TEXT:AT EACH SPINRAZA ADMINISTRATION
  13. METGLUCO [Concomitant]
     Active Substance: METFORMIN HYDROCHLORIDE
     Indication: Diabetes mellitus
  14. METGLUCO [Concomitant]
     Active Substance: METFORMIN HYDROCHLORIDE
     Dosage: DOSAGE TEXT:TOTAL DAILY DOSE: 500-1000 MG
  15. VILDAGLIPTIN [Concomitant]
     Active Substance: VILDAGLIPTIN
     Indication: Diabetes mellitus
  16. MIGLITOL OD [Concomitant]
     Indication: Diabetes mellitus
  17. TELTHIA [Concomitant]
     Indication: Hypertension
     Dates: start: 202206, end: 202406
  18. HYALURONATE SODIUM [Concomitant]
     Active Substance: HYALURONATE SODIUM
     Indication: Prophylaxis
     Dosage: ROUTE: OPHTHALMIC?DOSAGE TEXT:AS NEEDED
  19. METFORMIN HYDROCHLORIDE\VILDAGLIPTIN [Concomitant]
     Active Substance: METFORMIN HYDROCHLORIDE\VILDAGLIPTIN
     Indication: Diabetes mellitus
  20. METFORMIN HYDROCHLORIDE\VILDAGLIPTIN [Concomitant]
     Active Substance: METFORMIN HYDROCHLORIDE\VILDAGLIPTIN
     Indication: Dyslipidaemia
  21. MIGLITOL [Concomitant]
     Active Substance: MIGLITOL
     Indication: Diabetes mellitus
  22. MIGLITOL [Concomitant]
     Active Substance: MIGLITOL
     Indication: Dyslipidaemia
  23. VONOPRAZAN FUMARATE [Concomitant]
     Active Substance: VONOPRAZAN FUMARATE
     Dosage: 10 MG/DAY

REACTIONS (2)
  - Breast cancer [Recovered/Resolved]
  - Hepatic function abnormal [Unknown]

NARRATIVE: CASE EVENT DATE: 20181217
